FAERS Safety Report 4354855-X (Version None)
Quarter: 2004Q2

REPORT INFORMATION
  Report Type: 
  Country: None (occurrence: None)
  Receive Date: 20040507
  Receipt Date: 20040430
  Transmission Date: 20050107
  Serious: Yes (Death)
  Sender: FDA-Public Use
  Company Number: FR-GLAXOSMITHKLINE-B0331925A

PATIENT
  Sex: Female

DRUGS (3)
  1. VINORELBINE TARTRATE [Suspect]
     Dosage: 25MGM2 CYCLIC
     Route: 042
  2. VINORELBINE TARTRATE [Suspect]
     Dosage: 60MGM2 CYCLIC
     Route: 048
  3. DOCETAXEL [Suspect]
     Dosage: 70MGM2 CYCLIC
     Route: 042

REACTIONS (1)
  - SEPTIC SHOCK [None]
